FAERS Safety Report 6660169-5 (Version None)
Quarter: 2010Q1

REPORT INFORMATION
  Report Type: 
  Country: None (occurrence: None)
  Receive Date: 20100331
  Receipt Date: 20100319
  Transmission Date: 20100710
  Serious: No
  Sender: FDA-Public Use
  Company Number: 2009BI021065

PATIENT
  Age: 56 Year
  Sex: Male

DRUGS (2)
  1. TYSABRI [Suspect]
     Indication: MULTIPLE SCLEROSIS
     Route: 042
     Dates: start: 20090616
  2. BENADRYL [Concomitant]
     Indication: PREMEDICATION

REACTIONS (3)
  - ASTHENIA [None]
  - DRUG EFFECT DECREASED [None]
  - FATIGUE [None]
